FAERS Safety Report 6899517-X (Version None)
Quarter: 2010Q3

REPORT INFORMATION
  Report Type: 
  Country: None (occurrence: None)
  Receive Date: 20100803
  Receipt Date: 20100729
  Transmission Date: 20110219
  Serious: No
  Sender: FDA-Public Use
  Company Number: US-BIOGENIDEC-2010BI024433

PATIENT
  Age: 46 Year
  Sex: Female

DRUGS (1)
  1. TYSABRI [Suspect]
     Indication: MULTIPLE SCLEROSIS
     Route: 042
     Dates: start: 20080807

REACTIONS (6)
  - FATIGUE [None]
  - HYPERCHLORHYDRIA [None]
  - INSOMNIA [None]
  - MUSCLE SPASMS [None]
  - SOMNOLENCE [None]
  - VOMITING [None]
